FAERS Safety Report 10395162 (Version 3)
Quarter: 2014Q4

REPORT INFORMATION
  Report Type: Spontaneous
  Country: ES (occurrence: ES)
  Receive Date: 20140820
  Receipt Date: 20141217
  Transmission Date: 20150528
  Serious: Yes (Other)
  Sender: FDA-Public Use
  Company Number: ES-AMGEN-ESPSP2014029426

PATIENT
  Age: 70 Year
  Sex: Female

DRUGS (6)
  1. METOJECT [Concomitant]
     Active Substance: METHOTREXATE SODIUM
     Indication: RHEUMATOID ARTHRITIS
     Dosage: 1 DF, WEEKLY (MONDAYS)
  2. CORTISONE [Concomitant]
     Active Substance: CORTISONE\HYDROCORTISONE
     Dosage: UNK
  3. ENBREL [Suspect]
     Active Substance: ETANERCEPT
     Indication: RHEUMATOID ARTHRITIS
     Dosage: 50 MG, TWICE WEEKLY
     Route: 065
     Dates: start: 20140314, end: 2014
  4. ENBREL [Suspect]
     Active Substance: ETANERCEPT
     Dosage: 50 MG, ONCE WEEKLY
     Route: 058
  5. INACID                             /00003801/ [Concomitant]
     Indication: ANALGESIC THERAPY
     Dosage: 1 TABLET EVERY 8 HOURS
  6. ACFOL [Concomitant]
     Active Substance: FOLIC ACID
     Indication: RHEUMATOID ARTHRITIS
     Dosage: 1 UNK, WEEKLY (TUESDAYS)

REACTIONS (8)
  - Abasia [Not Recovered/Not Resolved]
  - Skin ulcer [Recovering/Resolving]
  - Arthritis [Not Recovered/Not Resolved]
  - Femur fracture [Unknown]
  - Dysstasia [Not Recovered/Not Resolved]
  - Inflammation [Not Recovered/Not Resolved]
  - Poor peripheral circulation [Not Recovered/Not Resolved]
  - Peripheral swelling [Not Recovered/Not Resolved]

NARRATIVE: CASE EVENT DATE: 2014
